FAERS Safety Report 10108594 (Version 1)
Quarter: 2014Q2

REPORT INFORMATION
  Report Type: Spontaneous
  Country: US (occurrence: US)
  Receive Date: 20140425
  Receipt Date: 20140425
  Transmission Date: 20141212
  Serious: Yes (Other)
  Sender: FDA-Public Use
  Company Number: US-BIOGENIDEC-2014BI037849

PATIENT
  Sex: Female
  Weight: 75 kg

DRUGS (9)
  1. AVONEX [Suspect]
     Indication: MULTIPLE SCLEROSIS
     Route: 030
  2. AVONEX [Suspect]
     Indication: MULTIPLE SCLEROSIS
     Route: 030
     Dates: start: 20000301
  3. AUBAGIO [Concomitant]
     Route: 048
     Dates: start: 201308
  4. REBIF [Concomitant]
     Dates: start: 201206, end: 20130806
  5. HYDROCHLOROTHIAZIDE [Concomitant]
     Route: 048
  6. JANUVIA [Concomitant]
  7. LISINOPRIL [Concomitant]
     Route: 048
  8. METFORMIN HCL [Concomitant]
     Route: 048
  9. PAXIL [Concomitant]
     Route: 048

REACTIONS (11)
  - Cerebrovascular accident [Unknown]
  - Cholecystectomy [Unknown]
  - Hypertension [Unknown]
  - Diabetes mellitus [Unknown]
  - Tonsillectomy [Unknown]
  - Varicella [Unknown]
  - Gastrooesophageal reflux disease [Unknown]
  - Snoring [Unknown]
  - Increased tendency to bruise [Unknown]
  - Arthralgia [Unknown]
  - Anxiety [Unknown]
